FAERS Safety Report 5999431-8 (Version None)
Quarter: 2008Q4

REPORT INFORMATION
  Report Type: 
  Country: None (occurrence: None)
  Receive Date: 20081215
  Receipt Date: 20081204
  Transmission Date: 20090506
  Serious: Yes (Hospitalization)
  Sender: FDA-Public Use
  Company Number: US-BAYER-200840085NA

PATIENT
  Age: 88 Year
  Sex: Male

DRUGS (2)
  1. AVELOX [Suspect]
     Indication: SINUSITIS
     Dates: start: 20081118
  2. AVELOX [Suspect]
     Dates: start: 20081118

REACTIONS (3)
  - HAEMATOCHEZIA [None]
  - INTESTINAL PERFORATION [None]
  - RECTAL HAEMORRHAGE [None]
